FAERS Safety Report 11809700 (Version 1)
Quarter: 2015Q4

REPORT INFORMATION
  Report Type: Spontaneous
  Country: HU (occurrence: HU)
  Receive Date: 20151208
  Receipt Date: 20151208
  Transmission Date: 20160305
  Serious: Yes (Other)
  Sender: FDA-Public Use
  Company Number: HU-AMGEN-HUNSP2015129918

PATIENT
  Age: 65 Year
  Sex: Female
  Weight: 83 kg

DRUGS (14)
  1. ENBREL [Suspect]
     Active Substance: ETANERCEPT
     Indication: RHEUMATOID ARTHRITIS
     Dosage: WEEKLY 1X1
     Route: 065
     Dates: start: 201507, end: 201508
  2. BETALOC ZOK PLUS [Concomitant]
     Indication: HYPERTENSION
     Dosage: 50 MG, 1 IN THE MORNING, STARTED 6 MONTHS AGO
  3. ASA [Concomitant]
     Active Substance: ASPIRIN
     Indication: MYOCARDIAL INFARCTION
     Dosage: 100 MG, 1 IN THE MORNING, STARTED 3 MONTHS AGO
  4. ENBREL [Suspect]
     Active Substance: ETANERCEPT
     Dosage: WEEKLY 1X1
     Route: 065
     Dates: start: 201510, end: 2015
  5. OMEPRAZOL                          /00661201/ [Concomitant]
     Active Substance: OMEPRAZOLE
     Indication: MYOCARDIAL INFARCTION
     Dosage: 20 MG, 1 IN THE MORNING, STARTED 3 MONTHS AGO
  6. IMURAN [Concomitant]
     Active Substance: AZATHIOPRINE
     Indication: RHEUMATOID ARTHRITIS
     Dosage: STARTED 10 MONTHS AGO
  7. CONCOR [Concomitant]
     Active Substance: BISOPROLOL FUMARATE
     Indication: HYPERTENSION
     Dosage: 5 MG, 1 IN THE MORNING, STARTED 8 YEARS AGO
  8. CLOPIDOGREL [Concomitant]
     Active Substance: CLOPIDOGREL BISULFATE
     Indication: MYOCARDIAL INFARCTION
     Dosage: 75 MG, 1 IN THE MORNING, STARTED 3 MONTHS AGO
  9. REPSO [Concomitant]
     Indication: RHEUMATOID ARTHRITIS
     Dosage: 20 MG, 1 IN THE MORNING ,STARTED 1 YEAR AGO
     Dates: end: 201510
  10. ATORVASTATIN [Concomitant]
     Active Substance: ATORVASTATIN
     Indication: RHEUMATOID ARTHRITIS
     Dosage: 80 MG, 1 IN THE MORNING, STARTED 10 MONTHS AGO
  11. TRAMADOL ACTAVIS [Concomitant]
     Active Substance: TRAMADOL
     Indication: ARTHRALGIA
     Dosage: 1 IN CASE OF PAIN, FOR 2 MONTHS NEEDS DAILY, STARTED 2 MONTHS AGO
  12. ARAVA [Suspect]
     Active Substance: LEFLUNOMIDE
     Indication: RHEUMATOID ARTHRITIS
     Dosage: 20 MG, 1 IN THE MORNING, STARTED 1 AND A HALF YEAR AGO, STOP ONE AND A HALF WEEK AGO
     Route: 065
  13. MEDROL [Concomitant]
     Active Substance: METHYLPREDNISOLONE
     Indication: RHEUMATOID ARTHRITIS
     Dosage: ACCORDING TO THE PAIN, DAILY 1-2, STARTED 5 YEARS AGO
  14. ATORIS [Concomitant]
     Active Substance: ATORVASTATIN CALCIUM
     Indication: LIPIDS INCREASED
     Dosage: 60 MG, 1 IN THE MORNING, STARTED 3 MONTHS AGO

REACTIONS (3)
  - Myocardial infarction [Unknown]
  - Rash macular [Not Recovered/Not Resolved]
  - Pruritus [Not Recovered/Not Resolved]

NARRATIVE: CASE EVENT DATE: 2015
